FAERS Safety Report 5773357-7 (Version None)
Quarter: 2008Q2

REPORT INFORMATION
  Report Type: 
  Country: None (occurrence: None)
  Receive Date: 20080616
  Receipt Date: 20080602
  Transmission Date: 20081010
  Serious: Yes (Hospitalization, Disabling, Other)
  Sender: FDA-Public Use
  Company Number: US-ELI_LILLY_AND_COMPANY-US200806000265

PATIENT
  Sex: Female

DRUGS (1)
  1. CYMBALTA [Suspect]
     Dates: start: 20060101

REACTIONS (5)
  - ABASIA [None]
  - CARDIOVASCULAR DISORDER [None]
  - COLOSTOMY [None]
  - ORGAN FAILURE [None]
  - OVERDOSE [None]
